FAERS Safety Report 12483153 (Version 3)
Quarter: 2017Q1

REPORT INFORMATION
  Report Type: Report from Study
  Country: DK (occurrence: DK)
  Receive Date: 20160620
  Receipt Date: 20170302
  Transmission Date: 20170428
  Serious: Yes (Hospitalization)
  Sender: FDA-Public Use
  Company Number: DK-AMGEN-DNKNI2016049430

PATIENT
  Age: 65 Year
  Sex: Female
  Weight: 124 kg

DRUGS (7)
  1. EBETREX [Suspect]
     Active Substance: METHOTREXATE SODIUM
     Indication: RHEUMATOID ARTHRITIS
     Dosage: UNK
     Route: 058
     Dates: start: 20060406, end: 20160208
  2. GABAPENTIN. [Concomitant]
     Active Substance: GABAPENTIN
     Indication: PAIN
     Dosage: 600 MG, DAILY
     Dates: start: 20141105
  3. CENTYL MED KALIUMKLORID [Concomitant]
     Active Substance: BENDROFLUMETHIAZIDE\POTASSIUM CHLORIDE
     Indication: HYPERTENSION
     Dosage: 1 DF, DAILY
     Dates: start: 20110811
  4. ETANERCEPT [Suspect]
     Active Substance: ETANERCEPT
     Indication: RHEUMATOID ARTHRITIS
     Dosage: 50 MG, QWK
     Route: 058
     Dates: start: 20080110, end: 20160208
  5. FURIX [Concomitant]
     Active Substance: FUROSEMIDE
     Indication: DIURETIC THERAPY
     Dosage: 20 MG, DAILY
     Dates: start: 20150702
  6. PINEX [Concomitant]
     Active Substance: ACETAMINOPHEN
     Indication: PAIN
     Dosage: 1 G, DAILY
     Dates: start: 20150320
  7. IBUMETIN [Concomitant]
     Active Substance: IBUPROFEN
     Indication: PAIN
     Dosage: 600 MG, DAILY
     Dates: start: 20150320

REACTIONS (4)
  - Necrotising soft tissue infection [Unknown]
  - Staphylococcal abscess [Unknown]
  - Postoperative abscess [Unknown]
  - Graft infection [Recovered/Resolved with Sequelae]

NARRATIVE: CASE EVENT DATE: 20160115
